FAERS Safety Report 21274186 (Version 1)
Quarter: 2022Q3

REPORT INFORMATION
  Report Type: Report from Study
  Country: ES (occurrence: ES)
  Receive Date: 20220831
  Receipt Date: 20220831
  Transmission Date: 20221027
  Serious: Yes (Other)
  Sender: FDA-Public Use
  Company Number: ES-TAKEDA-2022TUS059832

PATIENT
  Age: 68 Year
  Sex: Male

DRUGS (16)
  1. TEDUGLUTIDE [Suspect]
     Active Substance: TEDUGLUTIDE
     Indication: Short-bowel syndrome
     Dosage: 3.9 MILLIGRAM, QD
     Route: 042
     Dates: start: 20190425, end: 20210630
  2. TEDUGLUTIDE [Suspect]
     Active Substance: TEDUGLUTIDE
     Indication: Short-bowel syndrome
     Dosage: 3.9 MILLIGRAM, QD
     Route: 042
     Dates: start: 20190425, end: 20210630
  3. TEDUGLUTIDE [Suspect]
     Active Substance: TEDUGLUTIDE
     Indication: Short-bowel syndrome
     Dosage: 3.9 MILLIGRAM, QD
     Route: 042
     Dates: start: 20190425, end: 20210630
  4. TEDUGLUTIDE [Suspect]
     Active Substance: TEDUGLUTIDE
     Indication: Short-bowel syndrome
     Dosage: 3.9 MILLIGRAM, QD
     Route: 042
     Dates: start: 20190425, end: 20210630
  5. TEDUGLUTIDE [Suspect]
     Active Substance: TEDUGLUTIDE
     Dosage: 1.9 MILLIGRAM, QD
     Route: 042
     Dates: start: 20210630, end: 20210727
  6. TEDUGLUTIDE [Suspect]
     Active Substance: TEDUGLUTIDE
     Dosage: 1.9 MILLIGRAM, QD
     Route: 042
     Dates: start: 20210630, end: 20210727
  7. TEDUGLUTIDE [Suspect]
     Active Substance: TEDUGLUTIDE
     Dosage: 1.9 MILLIGRAM, QD
     Route: 042
     Dates: start: 20210630, end: 20210727
  8. TEDUGLUTIDE [Suspect]
     Active Substance: TEDUGLUTIDE
     Dosage: 1.9 MILLIGRAM, QD
     Route: 042
     Dates: start: 20210630, end: 20210727
  9. TEDUGLUTIDE [Suspect]
     Active Substance: TEDUGLUTIDE
     Dosage: 3.6 MILLIGRAM, QD
     Route: 042
     Dates: start: 20210728
  10. TEDUGLUTIDE [Suspect]
     Active Substance: TEDUGLUTIDE
     Dosage: 3.6 MILLIGRAM, QD
     Route: 042
     Dates: start: 20210728
  11. TEDUGLUTIDE [Suspect]
     Active Substance: TEDUGLUTIDE
     Dosage: 3.6 MILLIGRAM, QD
     Route: 042
     Dates: start: 20210728
  12. TEDUGLUTIDE [Suspect]
     Active Substance: TEDUGLUTIDE
     Dosage: 3.6 MILLIGRAM, QD
     Route: 042
     Dates: start: 20210728
  13. MODERNA COVID-19 VACCINE [Concomitant]
     Active Substance: ELASOMERAN
     Indication: COVID-19 immunisation
     Dosage: 1 INTERNATIONAL UNIT
     Route: 030
     Dates: start: 20211209, end: 20211209
  14. ASTRAZENECA COVID-19 VACCINE [Concomitant]
     Active Substance: AZD-1222
     Indication: COVID-19 immunisation
     Dosage: 1 INTERNATIONAL UNIT
     Route: 030
     Dates: start: 20210705, end: 20210705
  15. ASTRAZENECA COVID-19 VACCINE [Concomitant]
     Active Substance: AZD-1222
     Dosage: 1 INTERNATIONAL UNIT
     Route: 030
     Dates: start: 20210427, end: 20210427
  16. SANDOSTATIN LAR DEPOT [Concomitant]
     Active Substance: OCTREOTIDE ACETATE
     Dosage: 20 MILLIGRAM, MONTHLY
     Route: 030
     Dates: start: 20220118

REACTIONS (1)
  - Mucocutaneous haemorrhage [Recovered/Resolved]

NARRATIVE: CASE EVENT DATE: 20210915
